FAERS Safety Report 6890596-2 (Version None)
Quarter: 2010Q3

REPORT INFORMATION
  Report Type: 
  Country: None (occurrence: None)
  Receive Date: 20100731
  Receipt Date: 20081229
  Transmission Date: 20110219
  Serious: No
  Sender: FDA-Public Use
  Company Number: US-PFIZER INC-2008097844

PATIENT
  Sex: Female
  Weight: 73.028 kg

DRUGS (10)
  1. LIPITOR [Suspect]
     Indication: DYSLIPIDAEMIA
     Dosage: 20 MG, ALTERNATE DAY
     Route: 048
  2. LIPITOR [Suspect]
     Route: 048
  3. ZOCOR [Suspect]
     Indication: BLOOD CHOLESTEROL INCREASED
     Dosage: 40 MG, UNK
  4. ZOCOR [Suspect]
     Indication: DYSLIPIDAEMIA
     Route: 048
  5. TOPROL-XL [Concomitant]
     Dosage: UNK
  6. ACIPHEX [Concomitant]
     Dosage: UNK
  7. ASPIRIN [Concomitant]
     Dosage: UNK
  8. HYDROCHLOROTHIAZIDE [Concomitant]
     Dosage: UNK
  9. FOLIC ACID [Concomitant]
     Dosage: UNK
  10. ZETIA [Suspect]

REACTIONS (6)
  - DRUG INTOLERANCE [None]
  - FATIGUE [None]
  - PAIN IN EXTREMITY [None]
  - PRURITUS [None]
  - RASH [None]
  - URTICARIA [None]
